FAERS Safety Report 6412239-4 (Version None)
Quarter: 2009Q4

REPORT INFORMATION
  Report Type: 
  Country: None (occurrence: None)
  Receive Date: 20091023
  Receipt Date: 20091015
  Transmission Date: 20100525
  Serious: Yes (Hospitalization)
  Sender: FDA-Public Use
  Company Number: B0599183A

PATIENT
  Sex: Female

DRUGS (10)
  1. DILATREND [Suspect]
     Indication: DRUG USE FOR UNKNOWN INDICATION
     Route: 048
  2. LEVEMIR [Suspect]
     Indication: DRUG USE FOR UNKNOWN INDICATION
     Dosage: 30IU PER DAY
     Route: 058
     Dates: end: 20090909
  3. NOVOMIX [Suspect]
     Indication: DRUG USE FOR UNKNOWN INDICATION
     Dosage: 18IU PER DAY
     Route: 058
     Dates: end: 20090909
  4. NOVORAPID [Suspect]
     Indication: DRUG USE FOR UNKNOWN INDICATION
     Route: 058
     Dates: end: 20090909
  5. ASPIRIN [Suspect]
     Indication: DRUG USE FOR UNKNOWN INDICATION
     Route: 048
  6. TRIATEC [Suspect]
     Indication: DRUG USE FOR UNKNOWN INDICATION
     Route: 048
  7. TORASEMIDE [Concomitant]
  8. PRAVASTATIN SODIUM [Concomitant]
  9. EUTHROID-1 [Concomitant]
  10. PANTOPRAZOLE SODIUM [Concomitant]

REACTIONS (3)
  - DRUG ADMINISTRATION ERROR [None]
  - HYPOGLYCAEMIA [None]
  - LOSS OF CONSCIOUSNESS [None]
